FAERS Safety Report 17437521 (Version 1)
Quarter: 2020Q1

REPORT INFORMATION
  Report Type: Spontaneous
  Country: FR (occurrence: FR)
  Receive Date: 20200219
  Receipt Date: 20200219
  Transmission Date: 20200409
  Serious: Yes (Other)
  Sender: FDA-Public Use
  Company Number: FR-009507513-2002FRA006415

PATIENT
  Age: 32 Year
  Sex: Female

DRUGS (4)
  1. TARDYFERON B9 (FERROUS SULFATE (+) FOLIC ACID) [Concomitant]
     Active Substance: FERROUS SULFATE\FOLIC ACID
     Dosage: UNK
  2. CHRONADALATE [Suspect]
     Active Substance: NIFEDIPINE
     Indication: THREATENED LABOUR
     Dosage: 1 DOSAGE FORM, QD
     Route: 048
     Dates: start: 20191220, end: 20191221
  3. CELESTENE CHRONODOSE [Suspect]
     Active Substance: BETAMETHASONE
     Indication: THREATENED LABOUR
     Dosage: UNK
     Route: 030
     Dates: start: 20191219, end: 20191220
  4. ADALATE [Suspect]
     Active Substance: NIFEDIPINE
     Indication: THREATENED LABOUR
     Dosage: 4 DOSAGE FORM, ONCE
     Route: 048
     Dates: start: 20191219, end: 20191219

REACTIONS (1)
  - Hepatocellular injury [Recovering/Resolving]

NARRATIVE: CASE EVENT DATE: 20191228
